FAERS Safety Report 5906349-5 (Version None)
Quarter: 2008Q4

REPORT INFORMATION
  Report Type: 
  Country: None (occurrence: None)
  Receive Date: 20081002
  Receipt Date: 20070821
  Transmission Date: 20090506
  Serious: No
  Sender: FDA-Public Use
  Company Number: US-ABBOTT-07P-163-0420756-00

PATIENT

DRUGS (4)
  1. FENOFIBRATE [Suspect]
     Indication: DIABETES MELLITUS
  2. FENOFIBRATE [Suspect]
     Indication: DYSLIPIDAEMIA
  3. SIMVASTATIN [Suspect]
     Indication: DIABETES MELLITUS
  4. SIMVASTATIN [Suspect]
     Indication: DYSLIPIDAEMIA

REACTIONS (1)
  - HYPERGLYCAEMIA [None]
